FAERS Safety Report 21300044 (Version 1)
Quarter: 2022Q3

REPORT INFORMATION
  Report Type: Spontaneous
  Country: TW (occurrence: TW)
  Receive Date: 20220906
  Receipt Date: 20220906
  Transmission Date: 20221026
  Serious: Yes (Other)
  Sender: FDA-Public Use
  Company Number: TW-SCALL-2022-TW-000056

PATIENT
  Age: 72 Year
  Sex: Male

DRUGS (3)
  1. CARVEDILOL [Suspect]
     Active Substance: CARVEDILOL
     Indication: Suicide attempt
     Dosage: 25 MG
     Route: 048
  2. AMLODIPINE [Suspect]
     Active Substance: AMLODIPINE BESYLATE
     Indication: Suicide attempt
     Dosage: 5 MG
     Route: 048
  3. TELMISARTAN [Suspect]
     Active Substance: TELMISARTAN
     Indication: Suicide attempt
     Dosage: 80 MG
     Route: 048

REACTIONS (3)
  - Shock [Recovered/Resolved]
  - Hypotension [Recovered/Resolved]
  - Overdose [Recovered/Resolved]
